FAERS Safety Report 8582037-4 (Version None)
Quarter: 2012Q3

REPORT INFORMATION
  Report Type: 
  Country: None (occurrence: None)
  Receive Date: 20120809
  Receipt Date: 20120806
  Transmission Date: 20120928
  Serious: Yes (Other)
  Sender: FDA-Public Use
  Company Number: US-PFIZER INC-2012191213

PATIENT
  Sex: Female

DRUGS (4)
  1. CARDURA [Suspect]
     Dosage: UNK
  2. NEURONTIN [Suspect]
     Dosage: UNK
  3. LIPITOR [Suspect]
     Dosage: UNK
  4. PROCARDIA XL [Suspect]
     Dosage: UNK

REACTIONS (1)
  - LIMB INJURY [None]
